FAERS Safety Report 9364207 (Version 6)
Quarter: 2013Q4

REPORT INFORMATION
  Report Type: Report from Study
  Country: US (occurrence: US)
  Receive Date: 20130624
  Receipt Date: 20131007
  Transmission Date: 20140711
  Serious: Yes (Hospitalization)
  Sender: FDA-Public Use
  Company Number: US-ACTELION-A-NJ2013-84828

PATIENT
  Age: 38 Year
  Sex: Female

DRUGS (9)
  1. TRACLEER [Suspect]
     Indication: PULMONARY ARTERIAL HYPERTENSION
     Dosage: 125 MG, BID
     Route: 048
     Dates: start: 20130620
  2. TRACLEER [Suspect]
     Dosage: 62.5 MG, BID
     Route: 048
     Dates: start: 20130520
  3. SILDENAFIL [Concomitant]
     Dosage: 20 MG, TID
     Dates: start: 20130520
  4. LASIX [Concomitant]
     Dosage: 20 MG, OD
     Dates: start: 20130520
  5. CLARITIN [Concomitant]
     Dosage: 20 MG, OD
     Dates: start: 20130520
  6. KLOR-CON [Concomitant]
     Dosage: 10 MEQ, OD
     Dates: start: 20130520
  7. COLACE [Concomitant]
     Dosage: 100 MG, OD
     Dates: start: 20130520
  8. VICODIN [Concomitant]
     Dosage: UNK, TID
     Dates: start: 2007
  9. KLONOPIN [Concomitant]
     Dosage: 1 MG, QID
     Dates: start: 2007

REACTIONS (26)
  - Myocardial infarction [Unknown]
  - Emotional disorder [Unknown]
  - Medication error [Unknown]
  - Hypersensitivity [Unknown]
  - Chills [Unknown]
  - Anaemia [Not Recovered/Not Resolved]
  - Chest pain [Unknown]
  - Asthenia [Unknown]
  - Fatigue [Not Recovered/Not Resolved]
  - Oxygen saturation decreased [Unknown]
  - Sinus headache [Unknown]
  - Dyspnoea [Unknown]
  - Chest discomfort [Unknown]
  - Hypotension [Unknown]
  - Pulmonary arterial hypertension [Not Recovered/Not Resolved]
  - Condition aggravated [Not Recovered/Not Resolved]
  - Dizziness [Not Recovered/Not Resolved]
  - Skin odour abnormal [Unknown]
  - Arthralgia [Unknown]
  - Malaise [Unknown]
  - Headache [Not Recovered/Not Resolved]
  - International normalised ratio increased [Unknown]
  - Vision blurred [Unknown]
  - Blood pressure increased [Unknown]
  - Abasia [Not Recovered/Not Resolved]
  - Pleuritic pain [Recovering/Resolving]
